FAERS Safety Report 8267700-7 (Version None)
Quarter: 2012Q2

REPORT INFORMATION
  Report Type: 
  Country: None (occurrence: None)
  Receive Date: 20120405
  Receipt Date: 20120405
  Transmission Date: 20120825
  Serious: Yes (Hospitalization)
  Sender: FDA-Public Use
  Company Number: None

PATIENT
  Age: 43 Year
  Sex: Male
  Weight: 86.5 kg

DRUGS (1)
  1. TRAZODONE HCL [Suspect]
     Indication: INSOMNIA
     Dosage: 150MG AT BEDTIME PO
     Route: 048
     Dates: start: 20111021, end: 20111113

REACTIONS (8)
  - SEDATION [None]
  - HEADACHE [None]
  - LETHARGY [None]
  - OVERDOSE [None]
  - SUICIDE ATTEMPT [None]
  - VOMITING [None]
  - ALCOHOL POISONING [None]
  - NAUSEA [None]
